FAERS Safety Report 7536265-7 (Version None)
Quarter: 2011Q2

REPORT INFORMATION
  Report Type: 
  Country: None (occurrence: None)
  Receive Date: 20110609
  Receipt Date: 20110531
  Transmission Date: 20111010
  Serious: Yes (Other)
  Sender: FDA-Public Use
  Company Number: CN-ASTRAZENECA-2011SE33571

PATIENT
  Age: 44 Year
  Sex: Male

DRUGS (3)
  1. AIKEER [Concomitant]
     Dates: start: 20020919
  2. OMEPRAZOLE [Suspect]
     Route: 048
     Dates: start: 20020919, end: 20020925
  3. APROTININ [Concomitant]
     Route: 042
     Dates: start: 20020919

REACTIONS (2)
  - RETINAL DEPIGMENTATION [None]
  - VISION BLURRED [None]
